FAERS Safety Report 13359134 (Version 1)
Quarter: 2017Q1

REPORT INFORMATION
  Report Type: Spontaneous
  Country: JP (occurrence: JP)
  Receive Date: 20170322
  Receipt Date: 20170322
  Transmission Date: 20170429
  Serious: Yes (Hospitalization)
  Sender: FDA-Public Use
  Company Number: JP-SA-2017SA043830

PATIENT

DRUGS (5)
  1. DELLEGRA [Suspect]
     Active Substance: FEXOFENADINE HYDROCHLORIDE\PSEUDOEPHEDRINE HYDROCHLORIDE
     Route: 048
     Dates: start: 20170312
  2. ONON [Suspect]
     Active Substance: PRANLUKAST
     Route: 048
     Dates: start: 20170312
  3. HOKUNALIN [Concomitant]
     Active Substance: TULOBUTEROL
     Route: 062
     Dates: start: 20170312
  4. ADOAIR [Concomitant]
     Active Substance: FLUTICASONE PROPIONATE\SALMETEROL XINAFOATE
     Route: 065
     Dates: start: 20170312
  5. PREDONINE [Concomitant]
     Active Substance: PREDNISOLONE
     Route: 065
     Dates: start: 20170312

REACTIONS (7)
  - Wheezing [Unknown]
  - Chest pain [Unknown]
  - Arthralgia [Unknown]
  - Muscle spasms [Unknown]
  - Pain in extremity [Unknown]
  - Pneumonia [Unknown]
  - Asthma [Unknown]

NARRATIVE: CASE EVENT DATE: 20170312
